FAERS Safety Report 15306104 (Version 3)
Quarter: 2019Q3

REPORT INFORMATION
  Report Type: Spontaneous
  Country: US (occurrence: US)
  Receive Date: 20180822
  Receipt Date: 20190807
  Transmission Date: 20191004
  Serious: No
  Sender: FDA-Public Use
  Company Number: US-PFIZER INC-2018336123

PATIENT
  Age: 46 Year
  Sex: Female

DRUGS (1)
  1. LYRICA [Suspect]
     Active Substance: PREGABALIN
     Indication: TRIGEMINAL NEURALGIA
     Dosage: UNK

REACTIONS (8)
  - Visual impairment [Unknown]
  - Cerebral disorder [Unknown]
  - Bradyphrenia [Unknown]
  - Headache [Unknown]
  - Malaise [Unknown]
  - Withdrawal syndrome [Unknown]
  - Migraine [Unknown]
  - Nausea [Unknown]
